FAERS Safety Report 7996512-4 (Version None)
Quarter: 2011Q4

REPORT INFORMATION
  Report Type: 
  Country: None (occurrence: None)
  Receive Date: 20111220
  Receipt Date: 20111214
  Transmission Date: 20120403
  Serious: Yes (Other)
  Sender: FDA-Public Use
  Company Number: PHHY2011JP109048

PATIENT
  Age: 79 Year
  Sex: Male
  Weight: 54.6 kg

DRUGS (10)
  1. WARFARIN SODIUM [Suspect]
     Dosage: 2.25 MG, PER DAY
  2. LACTOMIN [Concomitant]
     Dosage: 1 G, TID
  3. S-1 [Interacting]
     Dosage: 50 MG, BID
     Dates: start: 20080115
  4. WARFARIN SODIUM [Interacting]
     Dosage: 1 MG, PER DAILY
  5. GLIMEPIRIDE [Concomitant]
     Dosage: 1 MG, UNK
  6. REBAMIPIDE [Concomitant]
     Dosage: 100 MG, UNK
  7. ATORVASTATIN [Concomitant]
     Dosage: 10 MG, QD
  8. HEPARIN [Concomitant]
     Dosage: 10000 IU, PER DAY
  9. WARFARIN SODIUM [Interacting]
     Dosage: 1.5 MG, PER DAILY
  10. ALLOPURINOL [Concomitant]
     Dosage: 100 MG, UNK

REACTIONS (2)
  - INTERNATIONAL NORMALISED RATIO INCREASED [None]
  - DRUG INTERACTION [None]
